FAERS Safety Report 25380227 (Version 1)
Quarter: 2025Q2

REPORT INFORMATION
  Report Type: Spontaneous
  Country: CA (occurrence: CA)
  Receive Date: 20250530
  Receipt Date: 20250530
  Transmission Date: 20250716
  Serious: Yes (Other)
  Sender: GALDERMA
  Company Number: CA-GALDERMA-CA2025008650

PATIENT

DRUGS (3)
  1. DOXYCYCLINE [Suspect]
     Active Substance: DOXYCYCLINE
     Indication: Antibiotic therapy
     Route: 065
  2. SULFAMETHOXAZOLE [Concomitant]
     Active Substance: SULFAMETHOXAZOLE
     Indication: Antibiotic therapy
     Route: 065
  3. MEROPENEM [Concomitant]
     Active Substance: MEROPENEM
     Indication: Antibiotic therapy
     Route: 065

REACTIONS (4)
  - Neutropenia [Unknown]
  - Drug hypersensitivity [Unknown]
  - Hepatic enzyme increased [Unknown]
  - Rash [Unknown]
